FAERS Safety Report 17503491 (Version 1)
Quarter: 2020Q1

REPORT INFORMATION
  Report Type: Report from Study
  Country: JP (occurrence: JP)
  Receive Date: 20200305
  Receipt Date: 20200305
  Transmission Date: 20200409
  Serious: Yes (Other)
  Sender: FDA-Public Use
  Company Number: JP-MYLANLABS-2020M1023295

PATIENT
  Age: 74 Year
  Sex: Male

DRUGS (49)
  1. FLUTAMIDE. [Suspect]
     Active Substance: FLUTAMIDE
     Indication: HORMONE-REFRACTORY PROSTATE CANCER
     Dosage: 375 MILLIGRAM, QD
     Route: 048
     Dates: start: 20161217, end: 20170412
  2. IOMERON [Suspect]
     Active Substance: IOMEPROL
     Indication: COMPUTERISED TOMOGRAM
     Dosage: UNK
     Route: 042
     Dates: start: 20171115, end: 20171115
  3. ROSUVASTATIN CALCIUM. [Concomitant]
     Active Substance: ROSUVASTATIN CALCIUM
     Indication: DYSLIPIDAEMIA
     Dosage: 2.5 MILLIGRAM, QD
     Route: 048
  4. METFORMIN HYDROCHLORIDE. [Concomitant]
     Active Substance: METFORMIN HYDROCHLORIDE
     Dosage: 250 MILLIGRAM, QD
     Route: 048
     Dates: start: 20190109, end: 20191015
  5. URSODEOXYCHOLIC ACID [Concomitant]
     Active Substance: URSODIOL
     Indication: HEPATIC FUNCTION ABNORMAL
     Dosage: 300 MILLIGRAM, QD
     Route: 048
     Dates: start: 20170113, end: 20170407
  6. XYLOCAINE WITH EPINEPHRINE [Concomitant]
     Active Substance: EPINEPHRINE BITARTRATE\LIDOCAINE HYDROCHLORIDE
     Dosage: INJECTION
     Route: 061
     Dates: start: 20170614, end: 20170614
  7. NEPAFENAC [Concomitant]
     Active Substance: NEPAFENAC
     Dosage: UNK
     Route: 031
  8. CEFCAPENE PIVOXIL HYDROCHLORIDE [Concomitant]
     Active Substance: CEFCAPENE PIVOXIL HYDROCHLORIDE
     Indication: INFECTION PROPHYLAXIS
     Dosage: UNK
     Route: 048
     Dates: start: 20170614, end: 20170617
  9. DENOSUMAB [Concomitant]
     Active Substance: DENOSUMAB
     Indication: METASTASES TO BONE
     Dosage: 120 MILLIGRAM, Q3MONTHS
     Route: 058
     Dates: start: 20170630
  10. CALCIUM L-ASPARTATE [Concomitant]
     Indication: PROPHYLAXIS
     Dosage: 600 MILLIGRAM, QD
     Route: 048
     Dates: start: 20170630
  11. MAGNESIUM OXIDE. [Concomitant]
     Active Substance: MAGNESIUM OXIDE
     Indication: CONSTIPATION PROPHYLAXIS
     Dosage: UNK
     Route: 048
     Dates: start: 20180113
  12. OLMESARTAN MEDOXOMIL. [Concomitant]
     Active Substance: OLMESARTAN MEDOXOMIL
     Indication: HYPERTENSION
     Dosage: 20 MILLIGRAM, QD
     Route: 048
  13. METFORMIN HYDROCHLORIDE. [Concomitant]
     Active Substance: METFORMIN HYDROCHLORIDE
     Indication: TYPE 2 DIABETES MELLITUS
     Dosage: 500 MILLIGRAM, QD
     Route: 048
     Dates: end: 20190108
  14. MECOBALAMIN [Concomitant]
     Active Substance: METHYLCOBALAMIN
     Dosage: 1500 MICROGRAM, QD
     Route: 048
  15. ORONINE                            /00088302/ [Concomitant]
     Indication: ARTHROPOD STING
     Dosage: UNK
     Route: 061
     Dates: start: 20180810, end: 20181019
  16. IOMERON [Suspect]
     Active Substance: IOMEPROL
     Dosage: UNK
     Route: 042
     Dates: start: 20180727, end: 20180727
  17. IOMERON [Suspect]
     Active Substance: IOMEPROL
     Dosage: UNK
     Route: 042
     Dates: start: 20181019, end: 20181019
  18. OPALMON [Concomitant]
     Active Substance: LIMAPROST
     Dosage: 15 MICROGRAM, QD
     Route: 048
  19. DEXAMETHASONE SODIUM PHOSPHATE. [Concomitant]
     Active Substance: DEXAMETHASONE SODIUM PHOSPHATE
     Indication: CATARACT OPERATION
     Dosage: UNK
     Route: 061
     Dates: start: 20170607, end: 20170607
  20. DEXAMETHASONE SODIUM PHOSPHATE. [Concomitant]
     Active Substance: DEXAMETHASONE SODIUM PHOSPHATE
     Dosage: UNK
     Route: 061
     Dates: start: 20170614, end: 20170614
  21. XYLOCAINE WITH EPINEPHRINE [Concomitant]
     Active Substance: EPINEPHRINE BITARTRATE\LIDOCAINE HYDROCHLORIDE
     Indication: CATARACT OPERATION
     Dosage: UNK
     Route: 061
     Dates: start: 20170607, end: 20170607
  22. LOXOPROFEN SODIUM [Concomitant]
     Active Substance: LOXOPROFEN SODIUM
     Indication: CATARACT OPERATION
     Dosage: UNK
     Route: 048
     Dates: start: 20170607, end: 20170610
  23. CLEAR BONE                         /00271001/ [Concomitant]
     Indication: BONE SCAN
     Dosage: UNK
     Route: 042
     Dates: start: 20171110, end: 20171110
  24. CLEAR BONE                         /00271001/ [Concomitant]
     Dosage: UNK
     Route: 042
     Dates: start: 20180720, end: 20180720
  25. ZOLADEX LA [Concomitant]
     Active Substance: GOSERELIN ACETATE
     Dosage: 10.8 MG, ONCE IN 3 MONTHS
     Route: 058
  26. LOXONIN [Concomitant]
     Active Substance: LOXOPROFEN SODIUM
     Indication: ANALGESIC THERAPY
     Dosage: UNK
     Dates: start: 20190115
  27. METFORMIN HYDROCHLORIDE. [Concomitant]
     Active Substance: METFORMIN HYDROCHLORIDE
     Dosage: 500 MILLIGRAM, QD
     Route: 048
     Dates: start: 20190108, end: 20191015
  28. GLIMEPIRIDE. [Concomitant]
     Active Substance: GLIMEPIRIDE
     Indication: DIABETES MELLITUS
     Dosage: 0.5 MILLIGRAM, QD
     Route: 048
     Dates: start: 20170526
  29. WYSTAL [Concomitant]
     Active Substance: CEFOPERAZONE SODIUM\SULBACTAM SODIUM
     Indication: CATARACT OPERATION
     Dosage: UNK
     Route: 042
     Dates: start: 20170607, end: 20170607
  30. WYSTAL [Concomitant]
     Active Substance: CEFOPERAZONE SODIUM\SULBACTAM SODIUM
     Dosage: UNK
     Route: 042
     Dates: start: 20170614, end: 20170614
  31. FLUOROMETHOLONE. [Concomitant]
     Active Substance: FLUOROMETHOLONE
     Indication: CATARACT OPERATION
     Dosage: UNK
     Route: 031
     Dates: start: 20170607, end: 20170621
  32. FLUOROMETHOLONE. [Concomitant]
     Active Substance: FLUOROMETHOLONE
     Dosage: UNK
     Route: 031
  33. NEPAFENAC [Concomitant]
     Active Substance: NEPAFENAC
     Indication: CATARACT OPERATION
     Dosage: UNK
     Route: 031
     Dates: start: 20170607, end: 20170904
  34. CLEAR BONE                         /00271001/ [Concomitant]
     Dosage: UNK
     Route: 042
     Dates: start: 20181012, end: 20181012
  35. CLEAR BONE                         /00271001/ [Concomitant]
     Dosage: UNK
     Dates: start: 20181127, end: 20181127
  36. ENZALUTAMIDE [Suspect]
     Active Substance: ENZALUTAMIDE
     Indication: HORMONE-REFRACTORY PROSTATE CANCER
     Dosage: 160 MILLIGRAM, QD
     Route: 048
     Dates: start: 20170413
  37. IOMERON [Suspect]
     Active Substance: IOMEPROL
     Dosage: UNK
     Route: 042
     Dates: start: 20180209, end: 20180209
  38. CLEAR BONE                         /00271001/ [Concomitant]
     Dosage: UNK
     Route: 042
     Dates: start: 20180126, end: 20180126
  39. MAGNESIUM OXIDE. [Concomitant]
     Active Substance: MAGNESIUM OXIDE
     Indication: CONSTIPATION
     Dosage: UNK
     Route: 048
     Dates: start: 20171115, end: 20180112
  40. NAFTOPIDIL [Concomitant]
     Active Substance: NAFTOPIDIL
     Indication: DYSURIA
     Dosage: 75 MILLIGRAM, QD
     Route: 048
  41. MOXIFLOXACIN HYDROCHLORIDE. [Concomitant]
     Active Substance: MOXIFLOXACIN HYDROCHLORIDE
     Indication: CATARACT OPERATION
     Dosage: UNK
     Route: 031
     Dates: start: 20170607, end: 20170904
  42. CLEAR BONE                         /00271001/ [Concomitant]
     Dosage: UNK
     Route: 042
     Dates: start: 20190329, end: 20190329
  43. DERMOVATE [Concomitant]
     Active Substance: CLOBETASOL
     Indication: ARTHROPOD STING
     Dosage: UNK
     Route: 061
     Dates: start: 20180925, end: 20181011
  44. SITAGLIPTIN PHOSPHATE MONOHYDRATE [Concomitant]
     Active Substance: SITAGLIPTIN PHOSPHATE
     Indication: TYPE 2 DIABETES MELLITUS
     Dosage: 50 MILLIGRAM, QD
     Route: 048
  45. LOXOPROFEN SODIUM [Concomitant]
     Active Substance: LOXOPROFEN SODIUM
     Dosage: UNK
     Route: 048
     Dates: start: 20170614, end: 20170617
  46. MOXIFLOXACIN HYDROCHLORIDE. [Concomitant]
     Active Substance: MOXIFLOXACIN HYDROCHLORIDE
     Dosage: UNK
     Route: 031
  47. CEFCAPENE PIVOXIL HYDROCHLORIDE [Concomitant]
     Active Substance: CEFCAPENE PIVOXIL HYDROCHLORIDE
     Indication: CATARACT OPERATION
     Dosage: UNK
     Route: 048
     Dates: start: 20170607, end: 20170610
  48. CEFCAPENE PIVOXIL HYDROCHLORIDE [Concomitant]
     Active Substance: CEFCAPENE PIVOXIL HYDROCHLORIDE
     Dosage: UNK
     Route: 048
     Dates: start: 20190115
  49. ALFACALCIDOL [Concomitant]
     Active Substance: ALFACALCIDOL
     Indication: PRODUCT USED FOR UNKNOWN INDICATION
     Dosage: 1 MICROGRAM, QD
     Route: 048

REACTIONS (10)
  - Diabetes mellitus [Recovered/Resolved]
  - Seborrhoeic keratosis [Recovered/Resolved]
  - Pruritus [Recovered/Resolved]
  - Constipation [Recovered/Resolved]
  - Fatigue [Recovered/Resolved]
  - Dental caries [Recovered/Resolved]
  - Arthropod sting [Recovered/Resolved]
  - Rash [Recovered/Resolved]
  - Decreased appetite [Recovered/Resolved]
  - Contrast media allergy [Recovered/Resolved]

NARRATIVE: CASE EVENT DATE: 20170512
